FAERS Safety Report 9574625 (Version 1)
Quarter: 2013Q4

REPORT INFORMATION
  Report Type: Spontaneous
  Country: FI (occurrence: FI)
  Receive Date: 20131001
  Receipt Date: 20131001
  Transmission Date: 20140711
  Serious: Yes (Hospitalization, Other)
  Sender: FDA-Public Use
  Company Number: FI-MERCK-1309FIN013382

PATIENT
  Age: 63 Year
  Sex: Female

DRUGS (1)
  1. JANUMET [Suspect]
     Indication: DIABETES MELLITUS
     Dosage: 1X2
     Route: 048
     Dates: start: 2008, end: 20130816

REACTIONS (2)
  - Bile duct stone [Not Recovered/Not Resolved]
  - Pancreatitis [Not Recovered/Not Resolved]
